FAERS Safety Report 17042102 (Version 1)
Quarter: 2019Q4

REPORT INFORMATION
  Report Type: Spontaneous
  Country: FR (occurrence: FR)
  Receive Date: 20191118
  Receipt Date: 20191118
  Transmission Date: 20200122
  Serious: Yes (Life-Threatening)
  Sender: FDA-Public Use
  Company Number: FR-TAKEDA-2019TUS065614

PATIENT
  Age: 54 Year
  Sex: Female
  Weight: 96 kg

DRUGS (1)
  1. ADENURIC [Suspect]
     Active Substance: FEBUXOSTAT
     Indication: HYPERURICAEMIA
     Dosage: 80 MILLIGRAM, QD
     Route: 048
     Dates: start: 201610, end: 201610

REACTIONS (1)
  - Oropharyngeal oedema [Recovered/Resolved]

NARRATIVE: CASE EVENT DATE: 201610
